FAERS Safety Report 5416553-0 (Version None)
Quarter: 2007Q3

REPORT INFORMATION
  Report Type: 
  Country: None (occurrence: None)
  Receive Date: 20070814
  Receipt Date: 20070814
  Transmission Date: 20080115
  Serious: No
  Sender: FDA-Public Use
  Company Number: None

PATIENT
  Sex: Female
  Weight: 72.5755 kg

DRUGS (2)
  1. BUPROPION HCL [Suspect]
     Indication: BIPOLAR II DISORDER
     Dosage: 300MG QAM
     Dates: start: 20070101
  2. BUPROPION HCL [Suspect]
     Indication: CORONARY ARTERY DISEASE
     Dosage: 300MG QAM
     Dates: start: 20070101

REACTIONS (3)
  - DISTURBANCE IN ATTENTION [None]
  - IRRITABILITY [None]
  - MOOD SWINGS [None]
